FAERS Safety Report 15100256 (Version 1)
Quarter: 2018Q3

REPORT INFORMATION
  Report Type: Spontaneous
  Country: DE (occurrence: DE)
  Receive Date: 20180703
  Receipt Date: 20180703
  Transmission Date: 20181010
  Serious: Yes (Hospitalization, Other)
  Sender: FDA-Public Use
  Company Number: DE-WEST-WARD PHARMACEUTICALS CORP.-DE-H14001-18-05253

PATIENT
  Age: 74 Year
  Sex: Female
  Weight: 45 kg

DRUGS (9)
  1. BEVACIZUMAB. [Suspect]
     Active Substance: BEVACIZUMAB
     Indication: COLORECTAL CANCER
     Dosage: LAST DOSE OF BEVACIZUMAB PRIOR TO THE EVENTS PNEUMONIA AND THORACIC PAIN WAS GIVEN ON 20/APR/2016.
     Route: 042
     Dates: start: 20160309, end: 20160420
  2. FOLINIC ACID [Concomitant]
     Active Substance: LEUCOVORIN
     Indication: COLORECTAL CANCER
     Route: 042
     Dates: start: 20160609, end: 20160610
  3. 5?FLUOROURACIL [Concomitant]
     Active Substance: FLUOROURACIL
     Indication: COLORECTAL CANCER
     Route: 042
     Dates: start: 20160609, end: 20160609
  4. RAMIPRIL. [Concomitant]
     Active Substance: RAMIPRIL
     Indication: HYPERTENSION
     Route: 048
     Dates: start: 2005
  5. OXALIPLATIN. [Concomitant]
     Active Substance: OXALIPLATIN
     Indication: COLORECTAL CANCER
     Route: 042
     Dates: start: 20160915, end: 20160915
  6. CAPECITABINE. [Suspect]
     Active Substance: CAPECITABINE
     Indication: COLORECTAL CANCER
     Dosage: LAST DOSE OF CAPECITABINE PRIOR TO THE EVENTS WAS GIVEN ON 03/MAY/2016.
     Route: 042
     Dates: start: 20160309, end: 20160503
  7. LOPERAMID [Concomitant]
     Active Substance: LOPERAMIDE
     Indication: PRODUCT USED FOR UNKNOWN INDICATION
     Route: 048
     Dates: start: 20160420
  8. MOXONIDIN [Concomitant]
     Active Substance: MOXONIDINE
     Indication: HYPERTENSION
     Route: 048
     Dates: start: 2005
  9. FUROSEMID [Concomitant]
     Active Substance: FUROSEMIDE
     Indication: CARDIAC FAILURE
     Route: 048
     Dates: start: 201509

REACTIONS (5)
  - Pneumonia [Recovered/Resolved]
  - Chest pain [Recovered/Resolved]
  - Diarrhoea [Not Recovered/Not Resolved]
  - Deep vein thrombosis [Recovered/Resolved]
  - Palmar-plantar erythrodysaesthesia syndrome [Recovered/Resolved]

NARRATIVE: CASE EVENT DATE: 20160420
